FAERS Safety Report 4494646-2 (Version None)
Quarter: 2004Q4

REPORT INFORMATION
  Report Type: 
  Country: None (occurrence: None)
  Receive Date: 20041103
  Receipt Date: 20041025
  Transmission Date: 20050328
  Serious: Yes (Other)
  Sender: FDA-Public Use
  Company Number: 2004-09-1095

PATIENT
  Age: 2 Month
  Sex: Female
  Weight: 5.9 kg

DRUGS (1)
  1. CELESTONE [Suspect]
     Indication: HAEMANGIOMA
     Dosage: 140 DROPS QD ORAL
     Route: 048

REACTIONS (5)
  - CARDIAC MURMUR [None]
  - CUSHINGOID [None]
  - EXCITABILITY [None]
  - HIRSUTISM [None]
  - HYPERTROPHIC OBSTRUCTIVE CARDIOMYOPATHY [None]
